FAERS Safety Report 23461951 (Version 1)
Quarter: 2024Q1

REPORT INFORMATION
  Report Type: Spontaneous
  Country: US (occurrence: None)
  Receive Date: 20240130
  Receipt Date: 20240130
  Transmission Date: 20240410
  Serious: No
  Sender: FDA-Public Use
  Company Number: None

PATIENT

DRUGS (2)
  1. CHLORHEXIDINE GLUCONATE [Suspect]
     Active Substance: CHLORHEXIDINE GLUCONATE
  2. FLUORIDEX [Suspect]

REACTIONS (5)
  - Paraesthesia oral [None]
  - Paraesthesia oral [None]
  - Hypogeusia [None]
  - Drug ineffective [None]
  - Hypersensitivity [None]
